FAERS Safety Report 7931816-2 (Version None)
Quarter: 2011Q4

REPORT INFORMATION
  Report Type: 
  Country: None (occurrence: None)
  Receive Date: 20111121
  Receipt Date: 20111007
  Transmission Date: 20120403
  Serious: No
  Sender: FDA-Public Use
  Company Number: US-BAYER-2011-109590

PATIENT
  Age: 66 Year
  Sex: Female

DRUGS (1)
  1. SARGRAMOSTIM [Suspect]
     Indication: LUNG NEOPLASM SURGERY
     Dosage: UNK
     Dates: start: 20110801, end: 20110801

REACTIONS (1)
  - BONE PAIN [None]
